FAERS Safety Report 5401269-7 (Version None)
Quarter: 2007Q3

REPORT INFORMATION
  Report Type: 
  Country: None (occurrence: None)
  Receive Date: 20070727
  Receipt Date: 20070727
  Transmission Date: 20080115
  Serious: Yes (Death)
  Sender: FDA-Public Use
  Company Number: None

PATIENT
  Age: 36 Year
  Sex: Male
  Weight: 86.1834 kg

DRUGS (1)
  1. METHADONE HCL [Suspect]

REACTIONS (6)
  - BRAIN OEDEMA [None]
  - CARDIOMEGALY [None]
  - HYPERTENSIVE HEART DISEASE [None]
  - SPLENOMEGALY [None]
  - THERAPEUTIC AGENT TOXICITY [None]
  - VISCERAL CONGESTION [None]
